FAERS Safety Report 18419348 (Version 1)
Quarter: 2020Q4

REPORT INFORMATION
  Report Type: Spontaneous
  Country: NL (occurrence: NL)
  Receive Date: 20201023
  Receipt Date: 20201023
  Transmission Date: 20210114
  Serious: Yes (Hospitalization)
  Sender: FDA-Public Use
  Company Number: NL-MYLANLABS-2020M1088851

PATIENT
  Sex: Male

DRUGS (5)
  1. NITAZOXANIDE [Suspect]
     Active Substance: NITAZOXANIDE
     Indication: ECHINOCOCCIASIS
     Dosage: 500 MILLIGRAM, BID ALONG WITH ALBENDAZOLE
     Route: 065
  2. CIMETIDINE [Suspect]
     Active Substance: CIMETIDINE
     Indication: ECHINOCOCCIASIS
     Dosage: 400 MILLIGRAM, BID,STOPPED AND THEN AGAIN STARTED AT THE SAME DOSE
     Route: 065
     Dates: start: 1993
  3. ALBENDAZOLE. [Suspect]
     Active Substance: ALBENDAZOLE
     Dosage: 800 MILLIGRAM, BID ALONG WITH CIMETIDINE
     Route: 065
  4. ALBENDAZOLE. [Suspect]
     Active Substance: ALBENDAZOLE
     Indication: ECHINOCOCCIASIS
     Dosage: 400 MILLIGRAM, BID
     Route: 065
     Dates: start: 1993
  5. ALBENDAZOLE. [Suspect]
     Active Substance: ALBENDAZOLE
     Dosage: 800 MILLIGRAM, BID ALONG WITH NITAZOXANIDE
     Route: 065

REACTIONS (2)
  - Drug ineffective for unapproved indication [Not Recovered/Not Resolved]
  - Off label use [Unknown]
